FAERS Safety Report 12804764 (Version 2)
Quarter: 2016Q4

REPORT INFORMATION
  Report Type: Spontaneous
  Country: DE (occurrence: DE)
  Receive Date: 20161003
  Receipt Date: 20161216
  Transmission Date: 20170207
  Serious: Yes (Other)
  Sender: FDA-Public Use
  Company Number: DE-009507513-1609DEU012170

PATIENT
  Age: 44 Year
  Sex: Male
  Weight: 110 kg

DRUGS (5)
  1. SORTIS [Suspect]
     Active Substance: ATORVASTATIN
     Indication: LIPID METABOLISM DISORDER
     Dosage: 20 MG, QD
     Route: 048
     Dates: start: 2004, end: 2004
  2. INEGY [Suspect]
     Active Substance: EZETIMIBE\SIMVASTATIN
     Indication: LIPID METABOLISM DISORDER
     Dosage: 1 DF (10/40 MG), QD
     Route: 048
     Dates: start: 2006, end: 20110505
  3. SIMVASTATIN. [Suspect]
     Active Substance: SIMVASTATIN
     Indication: LIPID METABOLISM DISORDER
     Dosage: 40 MG, ONCE A DAY
     Route: 048
     Dates: start: 2005, end: 2005
  4. PRAVASTATIN. [Suspect]
     Active Substance: PRAVASTATIN
     Indication: LIPID METABOLISM DISORDER
     Dosage: 20 MG, QD
     Route: 048
     Dates: start: 20110728, end: 20111110
  5. SORTIS [Suspect]
     Active Substance: ATORVASTATIN
     Dosage: 20 MG, QD
     Route: 048
     Dates: start: 1999, end: 1999

REACTIONS (4)
  - Hypoaesthesia [Recovering/Resolving]
  - Blood creatine phosphokinase increased [Recovering/Resolving]
  - Myalgia [Recovering/Resolving]
  - Polyneuropathy [Unknown]

NARRATIVE: CASE EVENT DATE: 2011
